FAERS Safety Report 25499531 (Version 1)
Quarter: 2025Q2

REPORT INFORMATION
  Report Type: Spontaneous
  Country: US (occurrence: None)
  Receive Date: 20250629
  Receipt Date: 20250629
  Transmission Date: 20250717
  Serious: No
  Sender: FDA-CTU
  Company Number: None

PATIENT
  Age: 44 Year
  Sex: Female
  Weight: 69.75 kg

DRUGS (1)
  1. MONISTAT 1 COMBINATION PACK [Suspect]
     Active Substance: MICONAZOLE NITRATE
     Indication: Fungal infection
     Dates: start: 20250610, end: 20250611

REACTIONS (5)
  - Vulvovaginal burning sensation [None]
  - Vulvovaginal pruritus [None]
  - Application site pain [None]
  - Vulvovaginal discomfort [None]
  - Vulvovaginal pain [None]

NARRATIVE: CASE EVENT DATE: 20250610
